FAERS Safety Report 21249674 (Version 1)
Quarter: 2022Q3

REPORT INFORMATION
  Report Type: Spontaneous
  Country: US (occurrence: None)
  Receive Date: 20220824
  Receipt Date: 20220824
  Transmission Date: 20221026
  Serious: Yes (Life-Threatening, Hospitalization, Other)
  Sender: FDA-Public Use
  Company Number: None

PATIENT
  Age: 65 Year
  Sex: Female

DRUGS (1)
  1. BANOPHEN [Suspect]
     Active Substance: DIPHENHYDRAMINE HYDROCHLORIDE
     Indication: Rash
     Dosage: 20 PILLS  EVERY 6 ?
     Dates: start: 20220723, end: 20220729

REACTIONS (8)
  - Skin burning sensation [None]
  - Rash [None]
  - Hypersensitivity [None]
  - Swelling [None]
  - Hypophagia [None]
  - Nasal congestion [None]
  - Pruritus [None]
  - Dry skin [None]

NARRATIVE: CASE EVENT DATE: 20220727
